FAERS Safety Report 10245336 (Version 2)
Quarter: 2014Q2

REPORT INFORMATION
  Report Type: Report from Study
  Country: GB (occurrence: GB)
  Receive Date: 20140618
  Receipt Date: 20140625
  Transmission Date: 20141212
  Serious: Yes (Other)
  Sender: FDA-Public Use
  Company Number: GB-ROCHE-1417338

PATIENT
  Age: 70 Year
  Sex: Female

DRUGS (8)
  1. AVASTIN [Suspect]
     Indication: BREAST CANCER METASTATIC
     Route: 065
     Dates: start: 201007
  2. PACLITAXEL [Suspect]
     Indication: BREAST CANCER METASTATIC
     Route: 065
  3. RAMIPRIL [Concomitant]
     Route: 065
  4. ASPIRIN [Concomitant]
     Route: 065
  5. SIMVASTATIN [Concomitant]
     Route: 065
  6. LANSOPRAZOLE [Concomitant]
  7. GLYCERYL TRINITRATE SPRAY [Concomitant]
  8. SALBUTAMOL INHALER [Concomitant]

REACTIONS (6)
  - Fatigue [Unknown]
  - Hypertension [Unknown]
  - Proteinuria [Unknown]
  - Disease progression [Unknown]
  - Neuropathy peripheral [Unknown]
  - Epistaxis [Unknown]
